FAERS Safety Report 9895104 (Version 2)
Quarter: 2014Q1

REPORT INFORMATION
  Report Type: Spontaneous
  Country: US (occurrence: US)
  Receive Date: 20140213
  Receipt Date: 20140213
  Transmission Date: 20141002
  Serious: No
  Sender: FDA-Public Use
  Company Number: US-BRISTOL-MYERS SQUIBB COMPANY-18698225

PATIENT
  Sex: Female

DRUGS (5)
  1. ORENCIA [Suspect]
     Route: 042
  2. METHOTREXATE [Concomitant]
  3. NEURONTIN [Concomitant]
  4. LODINE [Concomitant]
  5. VITAMIN B [Concomitant]
     Dosage: 1 DF = 2000 UNITS NOS

REACTIONS (1)
  - Hypoglycaemia [Unknown]
